FAERS Safety Report 13171873 (Version 2)
Quarter: 2017Q1

REPORT INFORMATION
  Report Type: Spontaneous
  Country: FR (occurrence: FR)
  Receive Date: 20170131
  Receipt Date: 20170223
  Transmission Date: 20170428
  Serious: Yes (Hospitalization, Congenital Anomaly, Other)
  Sender: FDA-Public Use
  Company Number: FR-ABBVIE-17P-056-1858819-00

PATIENT
  Sex: Male

DRUGS (1)
  1. DEPAKINE CHRONO [Suspect]
     Active Substance: VALPROATE SODIUM
     Indication: MATERNAL EXPOSURE TIMING UNSPECIFIED
     Route: 064

REACTIONS (16)
  - Speech disorder developmental [Unknown]
  - Congenital genital malformation [Recovered/Resolved]
  - Congenital torticollis [Unknown]
  - Enuresis [Unknown]
  - Foetal distress syndrome [Unknown]
  - Foetal exposure during pregnancy [Unknown]
  - Developmental delay [Unknown]
  - Ear disorder [Unknown]
  - Learning disorder [Unknown]
  - Attention deficit/hyperactivity disorder [Unknown]
  - Plagiocephaly [Recovered/Resolved with Sequelae]
  - Beta haemolytic streptococcal infection [Unknown]
  - Dyspraxia [Unknown]
  - Psychomotor skills impaired [Unknown]
  - Stereotypy [Unknown]
  - Ear infection [Unknown]

NARRATIVE: CASE EVENT DATE: 200111
